FAERS Safety Report 9981653 (Version 1)
Quarter: 2014Q1

REPORT INFORMATION
  Report Type: Report from Study
  Country: US (occurrence: US)
  Receive Date: 20140307
  Receipt Date: 20140307
  Transmission Date: 20141002
  Serious: No
  Sender: FDA-Public Use
  Company Number: US-ABBVIE-13P-163-1178388-00

PATIENT
  Sex: Female

DRUGS (2)
  1. HUMIRA [Suspect]
     Indication: RHEUMATOID ARTHRITIS
     Dates: start: 2010
  2. HYDROCODONE [Concomitant]
     Indication: PAIN
     Dosage: 5 TO 325 MG ONE EVERY 12 HOUR

REACTIONS (1)
  - Injection site pain [Not Recovered/Not Resolved]
